FAERS Safety Report 8848180 (Version 2)
Quarter: 2012Q4

REPORT INFORMATION
  Report Type: 
  Country: US (occurrence: US)
  Receive Date: 20121018
  Receipt Date: 20121109
  Transmission Date: 20130627
  Serious: Yes (Other)
  Sender: FDA-Public Use
  Company Number: US-SHIONOGI, INC-2012000276

PATIENT

DRUGS (3)
  1. KAPVAY [Suspect]
     Dosage: UNK
  2. ANTIPSYCHOTICS [Concomitant]
     Dosage: UNK
  3. ANTIDEPRESSANTS [Concomitant]
     Dosage: UNK

REACTIONS (1)
  - Hepatic enzyme increased [Unknown]
